FAERS Safety Report 14605024 (Version 2)
Quarter: 2018Q1

REPORT INFORMATION
  Report Type: Report from Study
  Country: US (occurrence: US)
  Receive Date: 20180306
  Receipt Date: 20180308
  Transmission Date: 20180509
  Serious: Yes (Hospitalization)
  Sender: FDA-Public Use
  Company Number: US-EXELIXIS-CABO-18012691

PATIENT
  Age: 48 Year
  Sex: Male

DRUGS (12)
  1. CABOMETYX [Suspect]
     Active Substance: CABOZANTINIB S-MALATE
     Indication: RENAL CANCER
     Dosage: 40 MG, QD
     Route: 048
     Dates: start: 20171016, end: 20180226
  2. LEXAPRO [Concomitant]
     Active Substance: ESCITALOPRAM OXALATE
  3. CABOMETYX [Suspect]
     Active Substance: CABOZANTINIB S-MALATE
     Indication: NEUROENDOCRINE CARCINOMA
  4. FLONASE [Concomitant]
     Active Substance: FLUTICASONE PROPIONATE
  5. ACETAMINOPHEN. [Concomitant]
     Active Substance: ACETAMINOPHEN
  6. XANAX [Concomitant]
     Active Substance: ALPRAZOLAM
  7. PRILOSEC [Concomitant]
     Active Substance: OMEPRAZOLE MAGNESIUM
  8. CARDURA [Concomitant]
     Active Substance: DOXAZOSIN MESYLATE
  9. RESTORIL [Concomitant]
     Active Substance: TEMAZEPAM
  10. VITAMIN D3 [Concomitant]
     Active Substance: CHOLECALCIFEROL
  11. NEURONTIN [Concomitant]
     Active Substance: GABAPENTIN
  12. THERAGRAN [Concomitant]
     Active Substance: VITAMINS

REACTIONS (2)
  - Diarrhoea [Unknown]
  - Infection [Unknown]

NARRATIVE: CASE EVENT DATE: 20180226
